FAERS Safety Report 5993460-6 (Version None)
Quarter: 2008Q4

REPORT INFORMATION
  Report Type: 
  Country: None (occurrence: None)
  Receive Date: 20081212
  Receipt Date: 20081210
  Transmission Date: 20090506
  Serious: Yes (Death)
  Sender: FDA-Public Use
  Company Number: GB-JNJFOC-20081203017

PATIENT
  Age: 21 Year
  Sex: Male

DRUGS (1)
  1. FENTANYL-100 [Suspect]
     Indication: DRUG USE FOR UNKNOWN INDICATION
     Route: 062

REACTIONS (5)
  - GROIN PAIN [None]
  - INTENTIONAL SELF-INJURY [None]
  - LIBIDO DECREASED [None]
  - PROCEDURAL NAUSEA [None]
  - SUICIDAL IDEATION [None]
